FAERS Safety Report 9603652 (Version 1)
Quarter: 2013Q4

REPORT INFORMATION
  Report Type: Spontaneous
  Country: US (occurrence: US)
  Receive Date: 20131007
  Receipt Date: 20131007
  Transmission Date: 20140711
  Serious: No
  Sender: FDA-Public Use
  Company Number: US-PFIZER INC-2013284288

PATIENT
  Sex: Female

DRUGS (3)
  1. LYRICA [Suspect]
     Indication: COMPLEX REGIONAL PAIN SYNDROME
     Dosage: UNK
  2. LYRICA [Suspect]
     Indication: NEUROPATHY PERIPHERAL
  3. NORTRIPTYLINE [Concomitant]
     Dosage: UNK

REACTIONS (2)
  - Off label use [Recovered/Resolved]
  - Therapeutic response unexpected [Recovered/Resolved]
